FAERS Safety Report 25219547 (Version 1)
Quarter: 2025Q2

REPORT INFORMATION
  Report Type: Spontaneous
  Country: US (occurrence: US)
  Receive Date: 20250421
  Receipt Date: 20250421
  Transmission Date: 20250717
  Serious: No
  Sender: GLAND PHARMA LTD
  Company Number: US-GLANDPHARMA-US-2025GLNSPO01043

PATIENT

DRUGS (3)
  1. DOXYCYCLINE [Suspect]
     Active Substance: DOXYCYCLINE
     Indication: Pruritus
     Route: 065
  2. FLAGYL [Suspect]
     Active Substance: METRONIDAZOLE\METRONIDAZOLE HYDROCHLORIDE
     Indication: Pruritus
     Route: 065
  3. CLOTRIMAZOLE\METRONIDAZOLE [Suspect]
     Active Substance: CLOTRIMAZOLE\METRONIDAZOLE
     Indication: Pruritus
     Route: 065

REACTIONS (1)
  - Drug ineffective [Unknown]
